FAERS Safety Report 18724161 (Version 1)
Quarter: 2021Q1

REPORT INFORMATION
  Report Type: Other
  Country: CA (occurrence: CA)
  Receive Date: 20210111
  Receipt Date: 20210111
  Transmission Date: 20210419
  Serious: Yes (Other)
  Sender: FDA-Public Use
  Company Number: CA-GLENMARK PHARMACEUTICALS-2021GMK051471

PATIENT

DRUGS (3)
  1. GABAPENTIN. [Suspect]
     Active Substance: GABAPENTIN
     Indication: NEURALGIA
     Dosage: UNK
     Route: 065
  2. LEVEMIR [Suspect]
     Active Substance: INSULIN DETEMIR
     Indication: TYPE 2 DIABETES MELLITUS
     Dosage: UNK (SOLUTION SUBCUTANEOUS)
     Route: 065
  3. INSULIN GLARGINE [Suspect]
     Active Substance: INSULIN GLARGINE
     Indication: TYPE 2 DIABETES MELLITUS
     Dosage: 18.0 UNIT, OD (1 EVERY 1 DAYS) (SOLUTION SUBCUTANEOUS)
     Route: 065

REACTIONS (13)
  - Anxiety [Unknown]
  - Blood glucose increased [Unknown]
  - Swelling [Unknown]
  - Pharyngeal swelling [Unknown]
  - Vision blurred [Unknown]
  - Pruritus [Unknown]
  - Dysphagia [Unknown]
  - Product use in unapproved indication [Unknown]
  - Sciatica [Unknown]
  - Diabetic foot [Unknown]
  - Onychoclasis [Unknown]
  - Muscle spasms [Unknown]
  - Neuralgia [Unknown]
